FAERS Safety Report 6213160-7 (Version None)
Quarter: 2009Q2

REPORT INFORMATION
  Report Type: 
  Country: None (occurrence: None)
  Receive Date: 20090602
  Receipt Date: 20090602
  Transmission Date: 20091009
  Serious: Yes (Life-Threatening, Hospitalization, Other)
  Sender: FDA-Public Use
  Company Number: None

PATIENT
  Age: 71 Year
  Sex: Male
  Weight: 86.1834 kg

DRUGS (6)
  1. DIGOXIN [Suspect]
     Indication: ATRIAL FIBRILLATION
     Dosage: .25MG 1 DAILY PO
     Route: 048
     Dates: start: 20090128, end: 20090226
  2. DILTIAZEM HCL [Suspect]
     Indication: ATRIAL FIBRILLATION
     Dosage: 120MG A DAILY PO
     Route: 048
     Dates: start: 20090128, end: 20090226
  3. ENOXAPARIN SODIUM [Concomitant]
  4. LOSARTAN POTASSIUM [Concomitant]
  5. OMEPRAZOLE [Concomitant]
  6. FOLIC ACID [Concomitant]

REACTIONS (4)
  - BLOOD PRESSURE INCREASED [None]
  - CEREBROVASCULAR ACCIDENT [None]
  - HEADACHE [None]
  - SPEECH DISORDER [None]
